FAERS Safety Report 5947219-6 (Version None)
Quarter: 2008Q4

REPORT INFORMATION
  Report Type: 
  Country: None (occurrence: None)
  Receive Date: 20081110
  Receipt Date: 20081031
  Transmission Date: 20090506
  Serious: Yes (Other)
  Sender: FDA-Public Use
  Company Number: US-ABBOTT-08P-163-0485027-00

PATIENT
  Sex: Female
  Weight: 121.67 kg

DRUGS (6)
  1. LUPRON DEPOT [Suspect]
     Indication: ENDOMETRIOSIS
     Route: 030
     Dates: start: 20080506, end: 20080506
  2. LUPRON DEPOT [Suspect]
     Route: 030
     Dates: start: 20080930, end: 20080930
  3. ACETAMINOPHEN W/ PROPOXYPHENE HCL [Concomitant]
     Indication: PAIN
     Route: 048
  4. TYLOX [Concomitant]
     Indication: PAIN
     Route: 048
  5. IBUPROFEN TABLETS [Concomitant]
     Indication: PAIN
     Route: 048
  6. UNSPECIFIED MEDICATION [Concomitant]
     Indication: HORMONE REPLACEMENT THERAPY

REACTIONS (3)
  - ABORTION SPONTANEOUS [None]
  - RASH [None]
  - URTICARIA [None]
